FAERS Safety Report 10153634 (Version 1)
Quarter: 2014Q2

REPORT INFORMATION
  Report Type: Spontaneous
  Country: US (occurrence: US)
  Receive Date: 20140505
  Receipt Date: 20140505
  Transmission Date: 20141212
  Serious: No
  Sender: FDA-Public Use
  Company Number: US-009507513-2012SP004409

PATIENT
  Age: 44 Year
  Sex: Male

DRUGS (2)
  1. CLARITIN [Suspect]
     Indication: NASOPHARYNGITIS
     Dosage: 10 MG, BID
     Route: 048
     Dates: start: 20120111
  2. FLAGYL [Concomitant]
     Indication: INFECTION
     Dosage: UNK UNK, UNKNOWN

REACTIONS (2)
  - Overdose [Unknown]
  - Off label use [Unknown]
